FAERS Safety Report 6703471-0 (Version None)
Quarter: 2010Q2

REPORT INFORMATION
  Report Type: 
  Country: None (occurrence: None)
  Receive Date: 20100428
  Receipt Date: 20100420
  Transmission Date: 20101027
  Serious: Yes (Hospitalization, Other)
  Sender: FDA-Public Use
  Company Number: 2010SP018734

PATIENT
  Age: 36 Year
  Sex: Male
  Weight: 72 kg

DRUGS (7)
  1. PEG-INTRON [Suspect]
     Indication: HEPATITIS C
     Dosage: 100 MCG; QW; SC; SEE IMAGE
     Route: 058
     Dates: start: 20100316
  2. PEG-INTRON [Suspect]
     Indication: HEPATITIS C
     Dosage: 100 MCG; QW; SC; SEE IMAGE
     Route: 058
     Dates: start: 20100316
  3. REBETOL [Suspect]
     Indication: HEPATITIS C
     Dosage: 800 MG; QD; PO
     Route: 048
     Dates: start: 20100316
  4. URSO 250 [Concomitant]
  5. BEZATOL SR [Concomitant]
  6. VOLTAREN [Concomitant]
  7. REBAMIPIDE [Concomitant]

REACTIONS (2)
  - BLOOD CREATINE PHOSPHOKINASE INCREASED [None]
  - TREATMENT NONCOMPLIANCE [None]
